FAERS Safety Report 7990213-4 (Version None)
Quarter: 2011Q4

REPORT INFORMATION
  Report Type: 
  Country: None (occurrence: None)
  Receive Date: 20111219
  Receipt Date: 20111214
  Transmission Date: 20120403
  Serious: Yes (Other)
  Sender: FDA-Public Use
  Company Number: JP-PFIZER INC-2011304569

PATIENT
  Age: 41 Year
  Sex: Female

DRUGS (3)
  1. LAFUTIDINE [Concomitant]
     Dosage: UNK
  2. CELECOXIB [Suspect]
     Dosage: 200 MG, 1X/DAY
     Route: 048
  3. PREDNISOLONE [Concomitant]
     Dosage: UNK

REACTIONS (2)
  - VASODILATATION [None]
  - HAEMORRHAGE SUBCUTANEOUS [None]
